FAERS Safety Report 7347251-4 (Version None)
Quarter: 2011Q1

REPORT INFORMATION
  Report Type: 
  Country: None (occurrence: None)
  Receive Date: 20110303
  Receipt Date: 20110216
  Transmission Date: 20110831
  Serious: Yes (Hospitalization, Other)
  Sender: FDA-Public Use
  Company Number: AUR-APL-2011-00635

PATIENT
  Age: 54 Year
  Sex: Male
  Weight: 133 kg

DRUGS (4)
  1. TOPIRAMATE [Suspect]
     Indication: BIPOLAR DISORDER
     Dosage: 50 MG, BID, ORAL
     Route: 048
     Dates: start: 20090401, end: 20100901
  2. ATENOLOL [Concomitant]
  3. XANAX [Suspect]
     Indication: ANXIETY
     Dosage: 1 MG, TID, ORAL
     Route: 048
     Dates: start: 19840101, end: 19850101
  4. XANAX [Suspect]
     Indication: PANIC ATTACK
     Dosage: 1 MG, TID, ORAL
     Route: 048
     Dates: start: 19840101, end: 19850101

REACTIONS (15)
  - HYPOAESTHESIA [None]
  - SPINAL COLUMN STENOSIS [None]
  - NEPHROLITHIASIS [None]
  - URINARY TRACT INFECTION [None]
  - CENTRAL NERVOUS SYSTEM INFECTION [None]
  - SEPSIS [None]
  - BLOOD PRESSURE DECREASED [None]
  - SWELLING [None]
  - BACTERIAL INFECTION [None]
  - CARDIAC INFECTION [None]
  - DIZZINESS [None]
  - FALL [None]
  - PROCEDURAL COMPLICATION [None]
  - HEADACHE [None]
  - NEGATIVE THOUGHTS [None]
